FAERS Safety Report 12113548 (Version 1)
Quarter: 2016Q1

REPORT INFORMATION
  Report Type: Report from Study
  Country: US (occurrence: US)
  Receive Date: 20160225
  Receipt Date: 20160225
  Transmission Date: 20160526
  Serious: No
  Sender: FDA-Public Use
  Company Number: US-AMGEN-USASL2016020035

PATIENT
  Age: 58 Year
  Sex: Female

DRUGS (1)
  1. ENBREL [Suspect]
     Active Substance: ETANERCEPT
     Indication: RHEUMATOID ARTHRITIS
     Dosage: 50 MG, QWK
     Route: 065
     Dates: start: 2006

REACTIONS (18)
  - Facial pain [Unknown]
  - Thirst [Unknown]
  - Malaise [Unknown]
  - Gastrointestinal disorder [Unknown]
  - Vomiting [Unknown]
  - Hyperhidrosis [Unknown]
  - Gastroenteritis viral [Unknown]
  - Ear pain [Unknown]
  - Diarrhoea [Unknown]
  - Muscle twitching [Unknown]
  - Chills [Unknown]
  - Respiratory tract congestion [Unknown]
  - Hiatus hernia [Unknown]
  - Nausea [Unknown]
  - Cough [Unknown]
  - Gastrooesophageal reflux disease [Unknown]
  - Influenza [Unknown]
  - Headache [Unknown]

NARRATIVE: CASE EVENT DATE: 20160215
